FAERS Safety Report 8282187-6 (Version None)
Quarter: 2012Q2

REPORT INFORMATION
  Report Type: 
  Country: None (occurrence: None)
  Receive Date: 20120413
  Receipt Date: 20120403
  Transmission Date: 20120825
  Serious: Yes (Hospitalization, Other)
  Sender: FDA-Public Use
  Company Number: FR-BRISTOL-MYERS SQUIBB COMPANY-16506321

PATIENT
  Age: 84 Year
  Sex: Male

DRUGS (5)
  1. IRBESARTAN [Suspect]
     Route: 048
     Dates: start: 20111201, end: 20111229
  2. BISOPROLOL FUMARATE [Suspect]
     Route: 048
     Dates: start: 20111201, end: 20111229
  3. LASIX [Suspect]
     Dosage: LASILIX SPECIAL ALSO FROM 10JAN2012
     Route: 048
     Dates: start: 20111228, end: 20111229
  4. RAMIPRIL [Suspect]
     Route: 048
     Dates: start: 20111229
  5. PREVISCAN [Concomitant]
     Route: 048
     Dates: start: 20111201

REACTIONS (4)
  - HYPOTENSION [None]
  - PANCREATITIS [None]
  - MALAISE [None]
  - DIARRHOEA [None]
